FAERS Safety Report 5084762-9 (Version None)
Quarter: 2006Q3

REPORT INFORMATION
  Report Type: 
  Country: None (occurrence: None)
  Receive Date: 20060815
  Receipt Date: 20060731
  Transmission Date: 20061208
  Serious: Yes (Hospitalization, Other)
  Sender: FDA-Public Use
  Company Number: 2006AL002080

PATIENT
  Age: 74 Year
  Sex: Female

DRUGS (4)
  1. CITALOPRAM HYDROBROMIDE [Suspect]
     Dosage: PO
  2. SULINDAK [Concomitant]
  3. ASPIRIN [Concomitant]
  4. KLOPIDOGREL [Concomitant]

REACTIONS (4)
  - DUODENAL ULCER [None]
  - GASTROINTESTINAL ULCER HAEMORRHAGE [None]
  - HAEMATEMESIS [None]
  - HAEMOGLOBIN DECREASED [None]
